FAERS Safety Report 9440445 (Version 1)
Quarter: 2013Q3

REPORT INFORMATION
  Report Type: Spontaneous
  Country: GB (occurrence: GB)
  Receive Date: 20130805
  Receipt Date: 20130805
  Transmission Date: 20140515
  Serious: Yes (Other)
  Sender: FDA-Public Use
  Company Number: PHHY2013GB081089

PATIENT
  Age: 55 Year
  Sex: Male
  Weight: 83.5 kg

DRUGS (5)
  1. LOSARTAN [Suspect]
     Indication: HYPERTENSION
     Dosage: 50 MG
     Route: 048
     Dates: start: 20130601, end: 20130620
  2. ALLOPURINOL [Concomitant]
  3. FINASTERIDE [Concomitant]
  4. FOLIC ACID [Concomitant]
  5. TAMSULOSIN [Concomitant]

REACTIONS (2)
  - Suicidal ideation [Recovered/Resolved]
  - Depressed mood [Recovered/Resolved]
